FAERS Safety Report 23766101 (Version 1)
Quarter: 2024Q2

REPORT INFORMATION
  Report Type: Spontaneous
  Country: BR (occurrence: BR)
  Receive Date: 20240421
  Receipt Date: 20240421
  Transmission Date: 20240716
  Serious: No
  Sender: FDA-Public Use
  Company Number: BR-WT-2024-AMR-032916

PATIENT
  Age: 59 Year
  Sex: Female

DRUGS (1)
  1. AVODART [Suspect]
     Active Substance: DUTASTERIDE
     Indication: Alopecia
     Dosage: 0.5 MG, QD
     Route: 065

REACTIONS (2)
  - Contraindicated product prescribed [Not Recovered/Not Resolved]
  - Product prescribing issue [Not Recovered/Not Resolved]
